FAERS Safety Report 8023617-4 (Version None)
Quarter: 2012Q1

REPORT INFORMATION
  Report Type: 
  Country: None (occurrence: None)
  Receive Date: 20120104
  Receipt Date: 20120104
  Transmission Date: 20120608
  Serious: Yes (Hospitalization)
  Sender: FDA-Public Use
  Company Number: None

PATIENT
  Age: 82 Year
  Sex: Male
  Weight: 81.8 kg

DRUGS (1)
  1. CODEINE/GUAIFENESIN [Suspect]
     Indication: UPPER RESPIRATORY TRACT INFECTION
     Dosage: 10/100 MG AT BEDTIME PO
     Route: 048
     Dates: start: 20111222, end: 20111225

REACTIONS (4)
  - INTERNATIONAL NORMALISED RATIO INCREASED [None]
  - LETHARGY [None]
  - MOVEMENT DISORDER [None]
  - SEDATION [None]
